FAERS Safety Report 4377339-1 (Version None)
Quarter: 2004Q2

REPORT INFORMATION
  Report Type: 
  Country: None (occurrence: None)
  Receive Date: 20040609
  Receipt Date: 20040402
  Transmission Date: 20050107
  Serious: No
  Sender: FDA-Public Use
  Company Number: 2004207937US

PATIENT
  Age: 76 Year
  Sex: Female

DRUGS (6)
  1. BEXTRA [Suspect]
     Indication: BACK PAIN
     Dosage: 10 MG, QD
     Dates: start: 20040401
  2. PRILOSEC [Concomitant]
  3. LANOXIN [Concomitant]
  4. METOPROLOL TARTRATE [Concomitant]
  5. ARICEPT [Concomitant]
  6. ZOLOFT [Concomitant]

REACTIONS (1)
  - SALIVARY GLAND ENLARGEMENT [None]
